FAERS Safety Report 18618384 (Version 3)
Quarter: 2021Q1

REPORT INFORMATION
  Report Type: Report from Study
  Country: MX (occurrence: MX)
  Receive Date: 20201215
  Receipt Date: 20210105
  Transmission Date: 20210419
  Serious: Yes (Hospitalization, Other)
  Sender: FDA-Public Use
  Company Number: NVSC2020MX329644

PATIENT
  Age: 72 Year
  Sex: Male
  Weight: 86 kg

DRUGS (4)
  1. TEGRETOL [Suspect]
     Active Substance: CARBAMAZEPINE
     Dosage: 200 MG
     Route: 065
  2. TEGRETOL [Suspect]
     Active Substance: CARBAMAZEPINE
     Indication: EPILEPSY
     Dosage: UNK UNK, QD (3 OF 200 MG) STOPPED 05 MONTHS AGO
     Route: 048
     Dates: start: 2010
  3. FENABBOTT [Concomitant]
     Active Substance: PHENOBARBITAL SODIUM
     Indication: EPILEPSY
     Dosage: AT NIGHT100 MG, QD
     Route: 048
     Dates: start: 2010
  4. TEGRETOL [Suspect]
     Active Substance: CARBAMAZEPINE
     Dosage: UNK UNK, QD (2 OF 200 MG) STARTED 05 MONTHS AGO
     Route: 048

REACTIONS (6)
  - Feeling abnormal [Unknown]
  - Hypersomnia [Not Recovered/Not Resolved]
  - Speech disorder [Unknown]
  - Thrombosis [Unknown]
  - Head injury [Recovered/Resolved with Sequelae]
  - Mobility decreased [Not Recovered/Not Resolved]

NARRATIVE: CASE EVENT DATE: 201912
